FAERS Safety Report 18399153 (Version 1)
Quarter: 2020Q4

REPORT INFORMATION
  Report Type: Spontaneous
  Country: GB (occurrence: GB)
  Receive Date: 20201010
  Receipt Date: 20201010
  Transmission Date: 20210114
  Serious: No
  Sender: FDA-Public Use
  Company Number: None

PATIENT
  Age: 28 Year
  Sex: Female
  Weight: 72 kg

DRUGS (1)
  1. AQUA BAN [Suspect]
     Active Substance: AMMONIUM CHLORIDE\CAFFEINE
     Indication: FLUID RETENTION
     Dosage: ?          QUANTITY:2 TABLET(S);?
     Route: 048
     Dates: start: 20201007, end: 20201009

REACTIONS (6)
  - Anxiety [None]
  - Product packaging issue [None]
  - Palpitations [None]
  - Product use issue [None]
  - Dehydration [None]
  - Nausea [None]

NARRATIVE: CASE EVENT DATE: 20201009
